FAERS Safety Report 7525787-0 (Version None)
Quarter: 2011Q2

REPORT INFORMATION
  Report Type: 
  Country: None (occurrence: None)
  Receive Date: 20110606
  Receipt Date: 20110601
  Transmission Date: 20111010
  Serious: Yes (Other)
  Sender: FDA-Public Use
  Company Number: CA-ABBOTT-11P-028-0729735-00

PATIENT
  Sex: Female

DRUGS (1)
  1. HUMIRA [Suspect]
     Indication: RHEUMATOID ARTHRITIS
     Route: 058
     Dates: start: 20100308

REACTIONS (5)
  - ANAPHYLACTIC REACTION [None]
  - FEELING COLD [None]
  - CHILLS [None]
  - DYSPNOEA [None]
  - PYREXIA [None]
